FAERS Safety Report 5545615-2 (Version None)
Quarter: 2007Q4

REPORT INFORMATION
  Report Type: 
  Country: None (occurrence: None)
  Receive Date: 20071211
  Receipt Date: 20071127
  Transmission Date: 20080405
  Serious: Yes (Other)
  Sender: FDA-Public Use
  Company Number: JP-ELI_LILLY_AND_COMPANY-JP200712000087

PATIENT
  Sex: Female

DRUGS (1)
  1. GEMCITABINE HCL [Suspect]
     Indication: GALLBLADDER CANCER
     Dosage: UNK, OTHER
     Route: 042

REACTIONS (1)
  - ACUTE PROMYELOCYTIC LEUKAEMIA [None]
